FAERS Safety Report 6828056-7 (Version None)
Quarter: 2010Q3

REPORT INFORMATION
  Report Type: 
  Country: None (occurrence: None)
  Receive Date: 20100709
  Receipt Date: 20100702
  Transmission Date: 20110219
  Serious: Yes (Hospitalization)
  Sender: FDA-Public Use
  Company Number: B0663561A

PATIENT
  Sex: Female

DRUGS (16)
  1. LAMICTAL [Suspect]
     Indication: EPILEPSY
     Dosage: 25MG PER DAY
     Route: 048
     Dates: start: 20100415, end: 20100428
  2. URBANYL [Concomitant]
     Indication: EPILEPSY
     Dosage: 20MG PER DAY
     Route: 048
     Dates: start: 20100415
  3. EFFERALGAN [Concomitant]
     Dosage: 1G AS REQUIRED
     Route: 048
  4. LEVOCARNIL [Concomitant]
     Dosage: 1UNIT THREE TIMES PER DAY
     Route: 065
  5. SPASFON LYOC [Concomitant]
     Indication: ABDOMINAL PAIN
     Route: 048
  6. SCOPODERM [Concomitant]
     Route: 065
  7. MICROLAX [Concomitant]
     Dosage: 1UNIT TWO TIMES PER WEEK
     Route: 065
  8. IPRATROPIUM [Concomitant]
     Dosage: .5MG THREE TIMES PER DAY
     Route: 065
  9. VOLTAREN [Concomitant]
     Indication: PAIN
     Route: 061
  10. OXYGEN [Concomitant]
     Route: 065
  11. DIPROSONE [Concomitant]
     Route: 065
  12. ATARAX [Concomitant]
     Dosage: 12.5MG PER DAY
     Route: 065
  13. KEPPRA [Concomitant]
     Indication: EPILEPSY
     Dosage: 2250MG PER DAY
     Route: 065
  14. LANSOPRAZOLE [Concomitant]
     Route: 065
  15. FORLAX [Concomitant]
     Dosage: 2UNIT PER DAY
     Route: 065
  16. CETORNAN [Concomitant]
     Dosage: 10G TWICE PER DAY
     Route: 048

REACTIONS (2)
  - HYPERHIDROSIS [None]
  - RASH [None]
